FAERS Safety Report 6838822-X (Version None)
Quarter: 2010Q3

REPORT INFORMATION
  Report Type: 
  Country: None (occurrence: None)
  Receive Date: 20100709
  Receipt Date: 20100608
  Transmission Date: 20110219
  Serious: Yes (Hospitalization)
  Sender: FDA-Public Use
  Company Number: GB-ACCORD-005165

PATIENT
  Age: 65 Year
  Sex: Male
  Weight: 75 kg

DRUGS (12)
  1. MYCOPHENOLATE MOFETIL [Suspect]
     Indication: GRAFT VERSUS HOST DISEASE
     Dosage: / ORAL
     Route: 048
     Dates: start: 20100204
  2. ACYCLOVIR [Concomitant]
  3. AMIKACIN SULFATE [Concomitant]
  4. BISOPROLOL FUMARATE [Concomitant]
  5. CYCLOSPORINE [Concomitant]
  6. CLEXANE (CLEXANE) [Concomitant]
  7. FUROSEMIDE [Concomitant]
  8. G-CSF (G-CSF) [Concomitant]
  9. ITRACONAZOLE [Concomitant]
  10. RAMIPRIL [Concomitant]
  11. SPIRONOLACTONE [Concomitant]
  12. TAZOCIN (TAZOCIN) [Concomitant]

REACTIONS (3)
  - DIARRHOEA [None]
  - OFF LABEL USE [None]
  - PNEUMATOSIS INTESTINALIS [None]
